FAERS Safety Report 8622458 (Version 2)
Quarter: 2012Q4

REPORT INFORMATION
  Report Type: Spontaneous
  Country: CA (occurrence: None)
  Receive Date: 20120605
  Receipt Date: 20120928
  Transmission Date: 20130627
  Serious: Yes (Disabling)
  Sender: FDA-Public Use
  Company Number: 2012-002038

PATIENT
  Age: 54 Year
  Sex: Female

DRUGS (4)
  1. ACTONEL [Suspect]
     Indication: OSTEOPOROSIS
     Dosage: 150 MG ONE DOSE ONLY, ORAL
     Route: 048
     Dates: start: 20110922, end: 20110922
  2. CALTRATE WITH VITAMIN D (CALCIUM CARBONATE, COLECALCIFEROL) [Concomitant]
  3. ALL OTHER THERAPEUTIC PRODUCTS [Concomitant]
  4. SYNTHROID [Concomitant]

REACTIONS (8)
  - Muscle spasms [None]
  - Gingivitis [None]
  - Mobility decreased [None]
  - Gait disturbance [None]
  - Posture abnormal [None]
  - Pain [None]
  - Gingival pain [None]
  - Gingival disorder [None]
